FAERS Safety Report 8018607-1 (Version None)
Quarter: 2012Q1

REPORT INFORMATION
  Report Type: 
  Country: None (occurrence: None)
  Receive Date: 20120103
  Receipt Date: 20120102
  Transmission Date: 20120608
  Serious: Yes (Death, Life-Threatening)
  Sender: FDA-Public Use
  Company Number: PH-B.I. PHARMACEUTICALS,INC./RIDGEFIELD-2011-CS-01175RP

PATIENT
  Age: 73 Year
  Sex: Female

DRUGS (3)
  1. NICARDIPINE HCL [Concomitant]
     Indication: HYPERTENSION
  2. PRADAXA [Suspect]
     Indication: CEREBROVASCULAR ACCIDENT PROPHYLAXIS
     Dosage: 110 MG
     Route: 048
     Dates: start: 20111204, end: 20111204
  3. INSULIN [Concomitant]
     Indication: DIABETES MELLITUS

REACTIONS (1)
  - HAEMORRHAGIC TRANSFORMATION STROKE [None]
